FAERS Safety Report 11794930 (Version 3)
Quarter: 2016Q1

REPORT INFORMATION
  Report Type: Spontaneous
  Country: US (occurrence: US)
  Receive Date: 20151202
  Receipt Date: 20160125
  Transmission Date: 20160525
  Serious: Yes (Hospitalization)
  Sender: FDA-Public Use
  Company Number: US-PFIZER INC-2015396923

PATIENT
  Age: 91 Year
  Sex: Male

DRUGS (1)
  1. SUTENT [Suspect]
     Active Substance: SUNITINIB MALATE
     Indication: RENAL CANCER METASTATIC
     Dosage: 37.5 MG ONCE A DAY ^23DAYS/42^
     Route: 048
     Dates: start: 20150203, end: 20150823

REACTIONS (1)
  - Cardiac failure congestive [Recovered/Resolved]
